FAERS Safety Report 12405855 (Version 1)
Quarter: 2016Q2

REPORT INFORMATION
  Report Type: Spontaneous
  Country: US (occurrence: None)
  Receive Date: 20160525
  Receipt Date: 20160525
  Transmission Date: 20160815
  Serious: Yes (Other)
  Sender: FDA-Public Use
  Company Number: None

PATIENT
  Age: 52 Year
  Sex: Female
  Weight: 47.63 kg

DRUGS (1)
  1. PRISTIQ EXTENDED-RELEASE [Suspect]
     Active Substance: DESVENLAFAXINE SUCCINATE
     Indication: DEPRESSION

REACTIONS (6)
  - Paraesthesia [None]
  - Hyperaesthesia [None]
  - Abdominal pain [None]
  - Tremor [None]
  - Drug withdrawal syndrome [None]
  - Drug dose omission [None]

NARRATIVE: CASE EVENT DATE: 20160314
